FAERS Safety Report 10035778 (Version 1)
Quarter: 2014Q1

REPORT INFORMATION
  Report Type: Report from Study
  Country: JP (occurrence: JP)
  Receive Date: 20140325
  Receipt Date: 20140325
  Transmission Date: 20141002
  Serious: Yes (Other)
  Sender: FDA-Public Use
  Company Number: JP-GLAXOSMITHKLINE-B0978416A

PATIENT
  Sex: Female
  Weight: 162 kg

DRUGS (8)
  1. VOTRIENT 200MG [Suspect]
     Indication: PLEOMORPHIC MALIGNANT FIBROUS HISTIOCYTOMA
     Dosage: 800MG PER DAY
     Route: 048
     Dates: start: 20130529, end: 20130604
  2. VOTRIENT 200MG [Suspect]
     Indication: PLEOMORPHIC MALIGNANT FIBROUS HISTIOCYTOMA
     Dosage: 800MG PER DAY
     Route: 048
     Dates: start: 20130613, end: 20130703
  3. MERCAZOLE [Suspect]
     Route: 065
  4. BIOFERMIN [Concomitant]
     Route: 048
  5. CRAVIT [Concomitant]
     Route: 065
  6. CALONAL [Concomitant]
     Route: 065
  7. THYRADIN [Concomitant]
     Route: 048
  8. MOBIC [Concomitant]
     Route: 048

REACTIONS (7)
  - Platelet count decreased [Not Recovered/Not Resolved]
  - Abdominal pain [Recovering/Resolving]
  - Diarrhoea [Recovering/Resolving]
  - Dehydration [Recovering/Resolving]
  - Hypertension [Recovering/Resolving]
  - Hepatic function abnormal [Unknown]
  - Thyroid function test abnormal [Unknown]
